FAERS Safety Report 8495542-6 (Version None)
Quarter: 2012Q3

REPORT INFORMATION
  Report Type: 
  Country: None (occurrence: None)
  Receive Date: 20120709
  Receipt Date: 20120702
  Transmission Date: 20120928
  Serious: Yes (Hospitalization)
  Sender: FDA-Public Use
  Company Number: ES-ROCHE-1072902

PATIENT
  Age: 50 Year
  Sex: Male

DRUGS (3)
  1. VEMURAFENIB [Suspect]
     Indication: MALIGNANT MELANOMA
     Dosage: LAST DOSE PRIOR TO SAE 25/MAY/2012
     Route: 048
     Dates: start: 20120110, end: 20120528
  2. DEXAMETASONA [Concomitant]
     Dates: start: 20120528, end: 20120607
  3. HUMALOG [Concomitant]
     Dosage: 26 U EN DESAYUNO Y 18U EN
     Dates: start: 20120530

REACTIONS (1)
  - HYPERGLYCAEMIA [None]
